FAERS Safety Report 5225364-0 (Version None)
Quarter: 2007Q1

REPORT INFORMATION
  Report Type: 
  Country: None (occurrence: None)
  Receive Date: 20070131
  Receipt Date: 20070129
  Transmission Date: 20070707
  Serious: Yes (Hospitalization)
  Sender: FDA-Public Use
  Company Number: DE-BOEHRINGER INGELHEIM GMBH, GERMANY-2007-DE-00215DE

PATIENT
  Sex: Female
  Weight: 50 kg

DRUGS (2)
  1. MICARDIS [Suspect]
     Route: 048
  2. DRUG UNKNOWN [Suspect]
     Route: 048

REACTIONS (3)
  - DRUG ABUSER [None]
  - OVERDOSE [None]
  - SUICIDE ATTEMPT [None]
